FAERS Safety Report 10899378 (Version 2)
Quarter: 2015Q1

REPORT INFORMATION
  Report Type: Spontaneous
  Country: JP (occurrence: JP)
  Receive Date: 20150309
  Receipt Date: 20150313
  Transmission Date: 20150721
  Serious: Yes (Hospitalization)
  Sender: FDA-Public Use
  Company Number: JP-KERYX BIOPHARMA UK LTD-2015JP000770

PATIENT

DRUGS (17)
  1. DILTIAZEM HYDROCHLORIDE. [Concomitant]
     Active Substance: DILTIAZEM HYDROCHLORIDE
     Indication: ANGINA PECTORIS
     Dosage: 100 MG, QD
     Route: 048
     Dates: start: 20140328
  2. REGPARA [Concomitant]
     Active Substance: CINACALCET HYDROCHLORIDE
     Indication: HYPERPARATHYROIDISM SECONDARY
     Dosage: 25 MG, QD
     Route: 048
     Dates: start: 201401
  3. LOXONIN [Concomitant]
     Active Substance: LOXOPROFEN SODIUM
     Indication: HEADACHE
     Dosage: 60 MG, QD
     Route: 048
  4. RIONA [Suspect]
     Active Substance: FERRIC CITRATE ANHYDROUS
     Dosage: 1250 MG, TID
     Route: 048
     Dates: start: 201410, end: 20141222
  5. AZILVA [Concomitant]
     Active Substance: AZILSARTAN KAMEDOXOMIL
     Indication: HYPERTENSION
     Dosage: 40 MG, QD
     Route: 048
  6. CRESTOR [Concomitant]
     Active Substance: ROSUVASTATIN CALCIUM
     Indication: HYPERLIPIDAEMIA
     Dosage: 1.25 MG, QD
     Route: 048
  7. HYTRACIN [Concomitant]
     Indication: HYPERTENSION
     Dosage: 0.25 MG, QD
     Route: 048
  8. DIAZEPAM. [Concomitant]
     Active Substance: DIAZEPAM
     Indication: INSOMNIA
     Dosage: 5 MG, QD
     Route: 048
  9. ZOLPIDEM TARTRATE. [Concomitant]
     Active Substance: ZOLPIDEM TARTRATE
     Indication: INSOMNIA
     Dosage: 10 MG, QD
     Route: 048
  10. LASIX [Concomitant]
     Active Substance: FUROSEMIDE
     Indication: URINE OUTPUT DECREASED
     Dosage: 80 MG, BID
     Route: 048
  11. RIONA [Suspect]
     Active Substance: FERRIC CITRATE ANHYDROUS
     Indication: HYPERPHOSPHATAEMIA
     Dosage: 1000 MG, TID
     Route: 048
     Dates: start: 20140826, end: 20141222
  12. ISOPIT [Concomitant]
     Indication: ANGINA PECTORIS
     Dosage: 1 DF, QD
     Route: 062
  13. DIAZEPAM. [Concomitant]
     Active Substance: DIAZEPAM
     Dosage: 5 MG, QD
     Route: 048
  14. NESP [Concomitant]
     Active Substance: DARBEPOETIN ALFA
     Indication: ANAEMIA
     Dosage: 40 ?G, UNK
     Route: 042
     Dates: end: 20141116
  15. LENDORMIN [Concomitant]
     Active Substance: BROTIZOLAM
     Indication: INSOMNIA
     Dosage: 0.25 MG, QD
     Route: 048
  16. CONIEL [Concomitant]
     Active Substance: BENIDIPINE HYDROCHLORIDE
     Indication: HYPERTENSION
     Dosage: 8 MG, BID
     Route: 048
  17. CETYLPYRIDINIUM CHLORIDE. [Concomitant]
     Active Substance: CETYLPYRIDINIUM CHLORIDE
     Dosage: 1 DF, QID
     Route: 048

REACTIONS (3)
  - Liver disorder [Recovered/Resolved]
  - Thrombocytopenia [Recovered/Resolved]
  - Muscular weakness [Recovered/Resolved]

NARRATIVE: CASE EVENT DATE: 20141113
